FAERS Safety Report 5828596-3 (Version None)
Quarter: 2008Q3

REPORT INFORMATION
  Report Type: 
  Country: None (occurrence: None)
  Receive Date: 20080731
  Receipt Date: 20080729
  Transmission Date: 20090109
  Serious: Yes (Death, Hospitalization)
  Sender: FDA-Public Use
  Company Number: US-BRISTOL-MYERS SQUIBB COMPANY-14199400

PATIENT
  Age: 71 Year
  Sex: Female

DRUGS (7)
  1. IXEMPRA KIT [Suspect]
     Indication: BREAST CANCER
     Route: 042
     Dates: start: 20080513, end: 20080513
  2. TENORMIN [Concomitant]
  3. NYSTATIN [Concomitant]
     Dosage: 1 DOSAGE FOM=70(UNITS NOT SPEC)
  4. CLONIDINE [Concomitant]
  5. LOVENOX [Concomitant]
  6. COUMADIN [Concomitant]
     Dosage: 1 DOSAGE FORM = 5(UNITS NOT SPECIFIED)
  7. ROCEPHIN [Concomitant]

REACTIONS (4)
  - CHEST WALL MASS [None]
  - LUNG INFILTRATION [None]
  - MALIGNANT NEOPLASM PROGRESSION [None]
  - MENTAL STATUS CHANGES [None]
